FAERS Safety Report 7401692-5 (Version None)
Quarter: 2011Q1

REPORT INFORMATION
  Report Type: 
  Country: None (occurrence: None)
  Receive Date: 20110329
  Receipt Date: 20110315
  Transmission Date: 20110831
  Serious: Yes (Hospitalization)
  Sender: FDA-Public Use
  Company Number: IDA-00513

PATIENT
  Age: 53 Year
  Sex: Female

DRUGS (9)
  1. EPIVIR [Concomitant]
  2. SOLIAN (AMISULPRIDE) [Concomitant]
  3. AVLOCARDYL (PROPRANOLOL) [Suspect]
     Dosage: ORAL
     Route: 048
  4. AMLOR (AMLODIPINE BESILATE) [Suspect]
     Dosage: 10 MG, DAILY, ORAL
     Route: 048
  5. ATARAX [Concomitant]
  6. TERCIAN (CYAMEMAZINE) [Concomitant]
  7. LASIX [Concomitant]
  8. REYATAZ [Concomitant]
  9. NO MATCH [Concomitant]

REACTIONS (6)
  - CARDIOGENIC SHOCK [None]
  - OVERDOSE [None]
  - TOXICITY TO VARIOUS AGENTS [None]
  - HYPOTENSION [None]
  - SINUS BRADYCARDIA [None]
  - DRUG INTERACTION [None]
